FAERS Safety Report 5673025-6 (Version None)
Quarter: 2008Q1

REPORT INFORMATION
  Report Type: 
  Country: None (occurrence: None)
  Receive Date: 20080319
  Receipt Date: 20080213
  Transmission Date: 20080703
  Serious: No
  Sender: FDA-Public Use
  Company Number: US-ASTRAZENECA-2008UW02951

PATIENT
  Age: 71 Year
  Sex: Female
  Weight: 64.4 kg

DRUGS (3)
  1. SYMBICORT [Suspect]
     Indication: COUGH
     Route: 055
     Dates: start: 20080101
  2. COD LIVER OIL [Concomitant]
  3. EYE DROPS [Concomitant]
     Indication: KERATOCONJUNCTIVITIS SICCA
     Route: 031

REACTIONS (7)
  - DYSPHAGIA [None]
  - EAR DISCOMFORT [None]
  - EYE PAIN [None]
  - PARAESTHESIA [None]
  - PHARYNGOLARYNGEAL PAIN [None]
  - PRURITUS [None]
  - SWOLLEN TONGUE [None]
